FAERS Safety Report 8114723-4 (Version None)
Quarter: 2012Q1

REPORT INFORMATION
  Report Type: 
  Country: None (occurrence: None)
  Receive Date: 20120202
  Receipt Date: 20120202
  Transmission Date: 20120608
  Serious: Yes (Life-Threatening)
  Sender: FDA-Public Use
  Company Number: None

PATIENT
  Sex: Female

DRUGS (1)
  1. CIMZIA [Suspect]
     Indication: CROHN'S DISEASE
     Dosage: 400 MG ONCE MONTHLY SUBQ
     Route: 058
     Dates: start: 20111205, end: 20120101

REACTIONS (3)
  - MUSCLE SPASMS [None]
  - PULMONARY EMBOLISM [None]
  - DEHYDRATION [None]
